FAERS Safety Report 10377728 (Version 2)
Quarter: 2014Q4

REPORT INFORMATION
  Report Type: Spontaneous
  Country: JP (occurrence: JP)
  Receive Date: 20140812
  Receipt Date: 20141027
  Transmission Date: 20150528
  Serious: Yes (Death, Other)
  Sender: FDA-Public Use
  Company Number: JP-JNJFOC-20140802082

PATIENT
  Age: 62 Year
  Sex: Male
  Weight: 52 kg

DRUGS (27)
  1. XEPLION [Suspect]
     Active Substance: PALIPERIDONE PALMITATE
     Indication: SCHIZOPHRENIA
     Route: 030
     Dates: start: 20140109, end: 20140109
  2. MOSAPRIDE CITRATE [Concomitant]
     Active Substance: MOSAPRIDE CITRATE
     Indication: GASTRITIS
     Route: 048
     Dates: start: 2010
  3. MAGMITT [Concomitant]
     Active Substance: MAGNESIUM OXIDE
     Indication: CONSTIPATION
     Route: 048
     Dates: start: 2010
  4. DAIKENCHUUTOU (HERBAL PREPARATION) [Concomitant]
     Indication: CONSTIPATION
     Route: 048
     Dates: start: 2010
  5. XEPLION [Suspect]
     Active Substance: PALIPERIDONE PALMITATE
     Indication: SCHIZOPHRENIA
     Route: 030
     Dates: start: 20140624, end: 20140624
  6. HIBERNA [Concomitant]
     Active Substance: PROMETHAZINE HYDROCHLORIDE
     Indication: PARKINSON^S DISEASE
     Route: 048
     Dates: start: 2010, end: 20140731
  7. MOSAPRIDE CITRATE [Concomitant]
     Active Substance: MOSAPRIDE CITRATE
     Indication: GASTRITIS
     Route: 048
     Dates: start: 20140111, end: 20140701
  8. XEPLION [Suspect]
     Active Substance: PALIPERIDONE PALMITATE
     Indication: SCHIZOPHRENIA
     Route: 030
     Dates: start: 20140204, end: 20140204
  9. CHALDOL [Concomitant]
     Indication: CONSTIPATION
     Route: 048
     Dates: start: 2010, end: 20140731
  10. NERIPROCT [Concomitant]
     Indication: HAEMORRHOIDS
     Route: 054
     Dates: start: 2010
  11. RAVONA [Concomitant]
     Indication: INSOMNIA
     Route: 048
     Dates: start: 2010
  12. XEPLION [Suspect]
     Active Substance: PALIPERIDONE PALMITATE
     Indication: SCHIZOPHRENIA
     Route: 030
     Dates: start: 20140401, end: 20140401
  13. ROHYPNOL [Concomitant]
     Active Substance: FLUNITRAZEPAM
     Indication: INSOMNIA
     Route: 048
     Dates: start: 2010, end: 20140731
  14. VEGETAMIN-A [Concomitant]
     Active Substance: CHLORPROMAZINE\PROMETHAZINE
     Indication: INSOMNIA
     Route: 048
     Dates: start: 2012, end: 20140731
  15. XEPLION [Suspect]
     Active Substance: PALIPERIDONE PALMITATE
     Indication: SCHIZOPHRENIA
     Route: 030
     Dates: start: 20140722, end: 20140722
  16. HEMOCURON [Concomitant]
     Active Substance: TRIBENOSIDE
     Indication: HAEMORRHOIDS
     Route: 048
     Dates: start: 2010, end: 20140731
  17. RAVONA [Concomitant]
     Indication: INSOMNIA
     Route: 048
     Dates: start: 20130501, end: 20140731
  18. VEGETAMIN-B [Concomitant]
     Active Substance: CHLORPROMAZINE HYDROCHLORIDE\PHENOBARBITAL\PROMETHAZINE
     Indication: INSOMNIA
     Route: 048
     Dates: start: 2012
  19. XEPLION [Suspect]
     Active Substance: PALIPERIDONE PALMITATE
     Indication: SCHIZOPHRENIA
     Route: 030
     Dates: start: 20140528, end: 20140528
  20. XEPLION [Suspect]
     Active Substance: PALIPERIDONE PALMITATE
     Indication: SCHIZOPHRENIA
     Route: 030
     Dates: start: 20140430, end: 20140430
  21. XEPLION [Suspect]
     Active Substance: PALIPERIDONE PALMITATE
     Indication: SCHIZOPHRENIA
     Route: 030
     Dates: start: 20140304, end: 20140304
  22. MOSAPRIDE CITRATE [Concomitant]
     Active Substance: MOSAPRIDE CITRATE
     Indication: PROPHYLAXIS
     Route: 048
     Dates: start: 2010
  23. TETRAMIDE [Concomitant]
     Active Substance: MIANSERIN
     Indication: INSOMNIA
     Route: 048
     Dates: start: 20130208, end: 20140731
  24. TETRAMIDE [Concomitant]
     Active Substance: MIANSERIN
     Indication: INSOMNIA
     Route: 048
     Dates: start: 2012
  25. DAIKENCHUUTOU (HERBAL PREPARATION) [Concomitant]
     Indication: CONSTIPATION
     Route: 048
     Dates: start: 20140111, end: 20140731
  26. MOSAPRIDE CITRATE [Concomitant]
     Active Substance: MOSAPRIDE CITRATE
     Indication: PROPHYLAXIS
     Route: 048
     Dates: start: 20140111, end: 20140701
  27. VEGETAMIN-B [Concomitant]
     Active Substance: CHLORPROMAZINE HYDROCHLORIDE\PHENOBARBITAL\PROMETHAZINE
     Indication: INSOMNIA
     Route: 048
     Dates: start: 20130211, end: 20140731

REACTIONS (3)
  - Circulatory collapse [Fatal]
  - Cardio-respiratory arrest [Fatal]
  - Electrocardiogram QT prolonged [Unknown]

NARRATIVE: CASE EVENT DATE: 20140701
